FAERS Safety Report 11856437 (Version 1)
Quarter: 2015Q4

REPORT INFORMATION
  Report Type: Spontaneous
  Country: US (occurrence: None)
  Receive Date: 20151218
  Receipt Date: 20151218
  Transmission Date: 20160305
  Serious: Yes (Hospitalization, Disabling)
  Sender: FDA-Public Use
  Company Number: None

PATIENT
  Age: 53 Year
  Sex: Male
  Weight: 117.94 kg

DRUGS (6)
  1. L ARGINE [Concomitant]
  2. VITAMIN E D3 [Concomitant]
  3. LEVAQUIN [Suspect]
     Active Substance: LEVOFLOXACIN
     Indication: URINARY TRACT INFECTION
     Dosage: 2008  2010
  4. SAW PALMETTO [Concomitant]
     Active Substance: SAW PALMETTO
  5. CRANBERRY. [Concomitant]
     Active Substance: CRANBERRY
  6. VITAMIN C [Concomitant]
     Active Substance: ASCORBIC ACID

REACTIONS (12)
  - Frustration [None]
  - Musculoskeletal pain [None]
  - Rotator cuff syndrome [None]
  - Tendonitis [None]
  - Pain [None]
  - Musculoskeletal stiffness [None]
  - Gait disturbance [None]
  - Back pain [None]
  - Neuropathy peripheral [None]
  - Discomfort [None]
  - Spinal column stenosis [None]
  - Hypoaesthesia [None]

NARRATIVE: CASE EVENT DATE: 20141203
